FAERS Safety Report 4813165-4 (Version None)
Quarter: 2005Q4

REPORT INFORMATION
  Report Type: 
  Country: None (occurrence: None)
  Receive Date: 20051028
  Receipt Date: 20051018
  Transmission Date: 20060501
  Serious: Yes (Hospitalization)
  Sender: FDA-Public Use
  Company Number: GB-SANOFI-SYNTHELABO-A01200507200

PATIENT
  Sex: Female

DRUGS (3)
  1. HYDROXYCHLOROQUINE SULFATE [Suspect]
     Indication: ARTHRALGIA
     Route: 065
  2. RAPAMUNE [Suspect]
     Indication: PROPHYLAXIS AGAINST TRANSPLANT REJECTION
     Route: 065
     Dates: start: 20020601
  3. AZATHIOPRINE [Suspect]
     Route: 065

REACTIONS (3)
  - DRUG INTERACTION [None]
  - LEUKOPENIA [None]
  - PLATELET COUNT DECREASED [None]
